FAERS Safety Report 5867293-5 (Version None)
Quarter: 2008Q3

REPORT INFORMATION
  Report Type: 
  Country: None (occurrence: None)
  Receive Date: 20080902
  Receipt Date: 20080821
  Transmission Date: 20090109
  Serious: Yes (Death, Hospitalization, Other)
  Sender: FDA-Public Use
  Company Number: CH-ABBOTT-08P-151-0471909-00

PATIENT
  Age: 66 Year
  Sex: Male
  Weight: 98 kg

DRUGS (13)
  1. KLACID I.V. [Suspect]
     Indication: DRUG USE FOR UNKNOWN INDICATION
     Route: 041
     Dates: start: 20080622, end: 20080627
  2. ATORVASTATIN CALCIUM [Interacting]
     Indication: ACUTE MYOCARDIAL INFARCTION
     Route: 048
     Dates: start: 20080622, end: 20080705
  3. LEVOFLOXACIN [Suspect]
     Indication: PNEUMONIA
     Route: 041
     Dates: start: 20080701, end: 20080705
  4. BEZAFIBRATE [Concomitant]
     Indication: DRUG USE FOR UNKNOWN INDICATION
     Route: 048
     Dates: end: 20080622
  5. NIFEDIPINE [Concomitant]
     Indication: DRUG USE FOR UNKNOWN INDICATION
     Route: 048
  6. ACETYLSALICYLIC ACID SRT [Concomitant]
     Indication: DRUG USE FOR UNKNOWN INDICATION
     Route: 048
  7. PERINDOPRIL ERBUMINE [Concomitant]
     Indication: DRUG USE FOR UNKNOWN INDICATION
     Route: 048
  8. FUROSEMIDE [Concomitant]
     Indication: DRUG USE FOR UNKNOWN INDICATION
     Route: 048
  9. LORAZEPAM [Concomitant]
     Indication: DRUG USE FOR UNKNOWN INDICATION
     Route: 048
  10. DICLOFENAC POTASSIUM [Concomitant]
     Indication: DRUG USE FOR UNKNOWN INDICATION
     Route: 048
  11. ULTRACET [Concomitant]
     Indication: DRUG USE FOR UNKNOWN INDICATION
     Dosage: 325MG/37.5MG 1 PER DAY
     Route: 048
  12. METHYLPREDNISOLONE SODIUM SUCCINATE [Concomitant]
     Indication: DRUG USE FOR UNKNOWN INDICATION
     Route: 041
     Dates: start: 20080702
  13. MEROPENEM [Concomitant]
     Indication: DRUG USE FOR UNKNOWN INDICATION
     Route: 041
     Dates: start: 20080628, end: 20080717

REACTIONS (10)
  - ACUTE RESPIRATORY DISTRESS SYNDROME [None]
  - BLOOD CREATINE PHOSPHOKINASE INCREASED [None]
  - DIASTOLIC DYSFUNCTION [None]
  - DRUG INTERACTION [None]
  - FALL [None]
  - LOWER GASTROINTESTINAL HAEMORRHAGE [None]
  - MULTI-ORGAN FAILURE [None]
  - PNEUMONIA [None]
  - RHABDOMYOLYSIS [None]
  - SEPTIC SHOCK [None]
